FAERS Safety Report 15854142 (Version 1)
Quarter: 2019Q1

REPORT INFORMATION
  Report Type: Spontaneous
  Country: GB (occurrence: GB)
  Receive Date: 20190122
  Receipt Date: 20190122
  Transmission Date: 20190417
  Serious: Yes (Hospitalization)
  Sender: FDA-Public Use
  Company Number: GB-GUERBET-GB-20190004

PATIENT
  Age: 28 Year
  Sex: Male
  Weight: 73 kg

DRUGS (1)
  1. DOTAREM [Suspect]
     Active Substance: GADOTERATE MEGLUMINE
     Indication: NUCLEAR MAGNETIC RESONANCE IMAGING
     Route: 042
     Dates: start: 20181211, end: 20181211

REACTIONS (9)
  - Swelling [Unknown]
  - Eye pruritus [Unknown]
  - Eye pain [Unknown]
  - Erythema [Unknown]
  - Pharyngeal hypoaesthesia [Unknown]
  - Sneezing [Unknown]
  - Hypersensitivity [Unknown]
  - Throat irritation [Unknown]
  - Sinonasal obstruction [Unknown]

NARRATIVE: CASE EVENT DATE: 20181211
